FAERS Safety Report 9135670 (Version 1)
Quarter: 2013Q1

REPORT INFORMATION
  Report Type: Spontaneous
  Country: HR (occurrence: HR)
  Receive Date: 20130304
  Receipt Date: 20130304
  Transmission Date: 20140127
  Serious: Yes (Other)
  Sender: FDA-Public Use
  Company Number: PHHY2013HR020223

PATIENT
  Sex: Male

DRUGS (3)
  1. FLEXID [Suspect]
     Indication: PROSTATITIS
     Route: 048
  2. PROSCAR [Concomitant]
  3. CIPRINOL [Concomitant]

REACTIONS (2)
  - Tendon rupture [Unknown]
  - Haematoma [Unknown]
